FAERS Safety Report 11102407 (Version 2)
Quarter: 2015Q3

REPORT INFORMATION
  Report Type: Spontaneous
  Country: US (occurrence: US)
  Receive Date: 20150507
  Receipt Date: 20150827
  Transmission Date: 20151125
  Serious: Yes (Other)
  Sender: FDA-Public Use
  Company Number: 2846073

PATIENT
  Age: 61 Year
  Sex: Female

DRUGS (4)
  1. KETOROLAC [Suspect]
     Active Substance: KETOROLAC\KETOROLAC TROMETHAMINE
     Indication: PAIN IN EXTREMITY
     Dosage: EVERY 2-3 WEEKS
     Route: 030
     Dates: start: 201411, end: 20150315
  2. KETOROLAC [Suspect]
     Active Substance: KETOROLAC\KETOROLAC TROMETHAMINE
     Indication: PAIN IN EXTREMITY
     Dosage: EVERY 2-3 WEEKS
     Route: 030
     Dates: start: 201411, end: 20150315
  3. KETOROLAC [Suspect]
     Active Substance: KETOROLAC\KETOROLAC TROMETHAMINE
     Indication: PAIN IN EXTREMITY
     Dosage: EVERY 2-3 WEEKS
     Route: 030
     Dates: start: 201411
  4. KETOROLAC [Suspect]
     Active Substance: KETOROLAC\KETOROLAC TROMETHAMINE
     Indication: PAIN IN EXTREMITY
     Dosage: EVERY 2-3 WEEKS
     Route: 030
     Dates: start: 201411

REACTIONS (9)
  - Product quality issue [Recovered/Resolved]
  - Arthralgia [Unknown]
  - Musculoskeletal chest pain [Not Recovered/Not Resolved]
  - Asthma [Recovered/Resolved]
  - Wheezing [Recovered/Resolved]
  - Chest pain [Unknown]
  - Drug administration error [Recovered/Resolved]
  - Musculoskeletal discomfort [Not Recovered/Not Resolved]
  - Contusion [Unknown]

NARRATIVE: CASE EVENT DATE: 201411
